FAERS Safety Report 9379452 (Version 2)
Quarter: 2013Q3

REPORT INFORMATION
  Report Type: Spontaneous
  Country: DK (occurrence: None)
  Receive Date: 20130627
  Receipt Date: 20130701
  Transmission Date: 20140515
  Serious: Yes (Death)
  Sender: FDA-Public Use
  Company Number: ENTC2013-0224

PATIENT
  Sex: Male

DRUGS (2)
  1. LEVODOPA, CARBIDOPA, ENTACAPONE [Suspect]
  2. ROTIGOTINE [Suspect]

REACTIONS (1)
  - Death [None]
